FAERS Safety Report 9794339 (Version 1)
Quarter: 2014Q1

REPORT INFORMATION
  Report Type: Spontaneous
  Country: ZA (occurrence: ZA)
  Receive Date: 20140102
  Receipt Date: 20140102
  Transmission Date: 20141002
  Serious: Yes (Other)
  Sender: FDA-Public Use
  Company Number: ZA-UCBSA-107866

PATIENT
  Sex: 0

DRUGS (2)
  1. KEPPRA [Suspect]
     Route: 048
  2. LAMICTIN [Concomitant]

REACTIONS (3)
  - Tuberculosis [Recovered/Resolved]
  - Pulmonary mass [Recovered/Resolved]
  - Skin lesion [Recovered/Resolved]
